FAERS Safety Report 7560284-8 (Version None)
Quarter: 2011Q2

REPORT INFORMATION
  Report Type: 
  Country: None (occurrence: None)
  Receive Date: 20110621
  Receipt Date: 20110609
  Transmission Date: 20111010
  Serious: Yes (Death, Other)
  Sender: FDA-Public Use
  Company Number: GB-CELGENEUS-167-21880-11061373

PATIENT

DRUGS (8)
  1. CYTARABINE [Concomitant]
  2. ETOPOSIDE [Concomitant]
     Dosage: 100 MILLIGRAM/SQ. METER
     Route: 065
  3. REVLIMID [Suspect]
     Dosage: 10 MILLIGRAM
     Route: 048
  4. REVLIMID [Suspect]
  5. ETOPOSIDE [Concomitant]
  6. DAUNORUBICIN HCL [Concomitant]
  7. CYTARABINE [Concomitant]
     Dosage: 200 MILLIGRAM/SQ. METER
     Route: 065
  8. DAUNORUBICIN HCL [Concomitant]
     Dosage: 50 MILLIGRAM/SQ. METER
     Route: 065

REACTIONS (5)
  - EMBOLISM VENOUS [None]
  - NO THERAPEUTIC RESPONSE [None]
  - DEATH [None]
  - ALANINE AMINOTRANSFERASE INCREASED [None]
  - HAEMATOTOXICITY [None]
